FAERS Safety Report 8852832 (Version 2)
Quarter: 2012Q4

REPORT INFORMATION
  Report Type: 
  Country: NL (occurrence: NL)
  Receive Date: 20121022
  Receipt Date: 20121128
  Transmission Date: 20130627
  Serious: Yes (Hospitalization)
  Sender: FDA-Public Use
  Company Number: NL-PFIZER INC-2012257620

PATIENT
  Age: 74 Year
  Sex: Female
  Weight: 69 kg

DRUGS (7)
  1. GENOTROPIN [Suspect]
     Indication: HYPOPITUITARISM
     Dosage: 0.4 mg, 1x/day, 7 injections/week
     Route: 058
     Dates: start: 20000421
  2. GENOTROPIN [Suspect]
     Indication: ADENOMA BENIGN
  3. DIAZEPAM [Suspect]
     Dosage: UNK
  4. HYDROCORTISONE [Concomitant]
     Indication: ACTH DECREASED
     Dosage: UNK
     Dates: start: 19870215
  5. HYDROCORTISONE [Concomitant]
     Indication: ADENOMA BENIGN
     Dosage: 10-5-5 mg,UNK
  6. LEVOTHYROXINE [Concomitant]
     Indication: THYROID DISORDER
     Dosage: UNK
     Dates: start: 19870328
  7. LEVOTHYROXINE [Concomitant]
     Indication: ADENOMA BENIGN
     Dosage: 75 ug, UNK

REACTIONS (2)
  - Fall [Recovered/Resolved]
  - Concussion [Recovered/Resolved]
